FAERS Safety Report 14097886 (Version 1)
Quarter: 2017Q4

REPORT INFORMATION
  Report Type: Spontaneous
  Country: US (occurrence: US)
  Receive Date: 20171016
  Receipt Date: 20171016
  Transmission Date: 20180321
  Serious: No
  Sender: FDA-Public Use
  Company Number: US-AMGEN-USASP2017015959

PATIENT
  Age: 60 Year
  Sex: Female

DRUGS (3)
  1. PROLIA [Suspect]
     Active Substance: DENOSUMAB
     Indication: OSTEOPOROSIS POSTMENOPAUSAL
     Dosage: UNK
     Route: 065
     Dates: start: 20161212
  2. VITAMIN D [Concomitant]
     Active Substance: CHOLECALCIFEROL
     Dosage: UNK
  3. MULTIVITAMIN [Concomitant]
     Active Substance: VITAMINS
     Dosage: UNK

REACTIONS (4)
  - Injection site swelling [Unknown]
  - Breast pain [Unknown]
  - Breast swelling [Unknown]
  - Nipple pain [Unknown]

NARRATIVE: CASE EVENT DATE: 201612
